FAERS Safety Report 14973474 (Version 5)
Quarter: 2018Q3

REPORT INFORMATION
  Report Type: Spontaneous
  Country: JP (occurrence: JP)
  Receive Date: 20180605
  Receipt Date: 20180720
  Transmission Date: 20181010
  Serious: Yes (Hospitalization, Other)
  Sender: FDA-Public Use
  Company Number: JP-PFIZER INC-2018226672

PATIENT
  Age: 89 Year
  Sex: Male

DRUGS (11)
  1. AMLODIPINE BESILATE [Suspect]
     Active Substance: AMLODIPINE BESYLATE
     Dosage: 1 DF, 1X/DAY (ONE TABLET ONCE IN THE MORNING AFTER BREAKFAST)
     Route: 048
  2. FUROSEMIDE. [Suspect]
     Active Substance: FUROSEMIDE
     Dosage: 1 DF, 1X/DAY (ONE TABLET ONCE IN THE MORNING AFTER BREAKFAST)
     Route: 048
  3. BROTIZOLAM [Suspect]
     Active Substance: BROTIZOLAM
     Dosage: 1 DF, 1X/DAY (ONE TABLET ONCE DAILY BEFORE GOING TO SLEEP)
     Route: 048
  4. ELDECALCITOL [Concomitant]
     Active Substance: ELDECALCITOL
     Dosage: 1 DF, 1X/DAY (ONE TABLET ONCE IN THE MORNING AFTER BREAKFAST)
     Route: 048
  5. DONEPEZIL HCL [Concomitant]
     Active Substance: DONEPEZIL HYDROCHLORIDE
     Dosage: 1 DF, 1X/DAY (ONE TABLET ONCE IN THE MORNING AFTER BREAKFAST)
     Route: 048
  6. CELECOXIB. [Concomitant]
     Active Substance: CELECOXIB
     Dosage: 2 DF, 2X/DAY(100 MG TWO TABLETS TWICE DAILY AFTER THE MORNING AND EVENING MEAL)
     Route: 048
  7. TAMSULOSIN HYDROCHLORIDE. [Concomitant]
     Active Substance: TAMSULOSIN HYDROCHLORIDE
     Dosage: 1 DF, 1X/DAY (ONE TABLET ONCE IN THE MORNING AFTER BREAKFAST)
     Route: 048
  8. ETIZOLAM [Suspect]
     Active Substance: ETIZOLAM
     Dosage: 2 DF, 2X/DAY (0.5 MG TWO TABLETS TWICE DAILY AFTER THE MORNING AND EVENING MEAL)
     Route: 048
  9. ALENDRONATE SODIUM. [Concomitant]
     Active Substance: ALENDRONATE SODIUM
     Dosage: 1 DF, WEEKLY (ONE TABLET ONCE ON WAKING UP (ONCE PER WEEK))
     Route: 048
  10. CANDESARTAN. [Suspect]
     Active Substance: CANDESARTAN
     Dosage: 1 DF, 1X/DAY (ONCE IN THE MORNING AFTER BREAKFAST)
     Route: 048
  11. ROSUVASTATIN. [Concomitant]
     Active Substance: ROSUVASTATIN
     Dosage: 1 DF, 1X/DAY (ONCE IN THE EVENING AFTER DINNER)
     Route: 048

REACTIONS (4)
  - Dizziness [Unknown]
  - Femoral neck fracture [Unknown]
  - Fall [Unknown]
  - Muscular weakness [Unknown]
